FAERS Safety Report 16007512 (Version 1)
Quarter: 2019Q1

REPORT INFORMATION
  Report Type: Spontaneous
  Country: US (occurrence: US)
  Receive Date: 20190226
  Receipt Date: 20190226
  Transmission Date: 20190418
  Serious: No
  Sender: FDA-Public Use
  Company Number: US-IGSA-SR10006897

PATIENT
  Age: 40 Year
  Sex: Female
  Weight: 50 kg

DRUGS (41)
  1. PROLASTIN-C LIQUID [Suspect]
     Active Substance: .ALPHA.1-PROTEINASE INHIBITOR HUMAN
     Indication: ALPHA-1 ANTI-TRYPSIN DEFICIENCY
     Dosage: 3000 MG, Q.WK.
     Route: 042
     Dates: start: 20180808
  2. FOLIC ACID. [Concomitant]
     Active Substance: FOLIC ACID
  3. DICYCLOMINE                        /00068601/ [Concomitant]
     Active Substance: DICYCLOMINE HYDROCHLORIDE
  4. BUSPIRONE [Concomitant]
     Active Substance: BUSPIRONE HYDROCHLORIDE
  5. VENTOLIN [Concomitant]
     Active Substance: ALBUTEROL SULFATE
  6. VITAMIN E                          /00110501/ [Concomitant]
     Active Substance: TOCOPHEROL
  7. ADVIL JUNIOR STRENGTH [Concomitant]
  8. BENADRYL ALLERGY [Concomitant]
     Active Substance: DIPHENHYDRAMINE HYDROCHLORIDE
  9. ADVIL (MEFENAMIC ACID) [Concomitant]
     Active Substance: MEFENAMIC ACID
  10. CYANOCOBALAMIN. [Concomitant]
     Active Substance: CYANOCOBALAMIN
  11. LEVETIRACETAM. [Concomitant]
     Active Substance: LEVETIRACETAM
  12. METFORMIN [Concomitant]
     Active Substance: METFORMIN HYDROCHLORIDE
  13. ESTRADIOL. [Concomitant]
     Active Substance: ESTRADIOL
  14. CETIRIZINE [Concomitant]
     Active Substance: CETIRIZINE HYDROCHLORIDE
  15. FIBER [Concomitant]
     Active Substance: PSYLLIUM HUSK
  16. BENADRYL [Concomitant]
     Active Substance: DIPHENHYDRAMINE HYDROCHLORIDE
  17. ANTIPYRINE + BENZOCAINE [Concomitant]
  18. ENSURE COMPACT [Concomitant]
  19. SIMPLY SALINE [Concomitant]
  20. GARLIC                             /01570501/ [Concomitant]
     Active Substance: GARLIC
  21. MONTELUKAST SODIUM. [Concomitant]
     Active Substance: MONTELUKAST SODIUM
  22. VITAMIN D3 [Concomitant]
     Active Substance: CHOLECALCIFEROL
  23. GAS-X [Concomitant]
     Active Substance: DIMETHICONE
  24. TROKENDI [Concomitant]
     Active Substance: TOPIRAMATE
  25. CROMOLYN SODIUM. [Concomitant]
     Active Substance: CROMOLYN SODIUM
  26. OFLOXACIN. [Concomitant]
     Active Substance: OFLOXACIN
  27. LAMOTRIGINE. [Concomitant]
     Active Substance: LAMOTRIGINE
  28. LASIX [Concomitant]
     Active Substance: FUROSEMIDE
  29. MIRALAX [Concomitant]
     Active Substance: POLYETHYLENE GLYCOL 3350
  30. CRANBERRY PLUS VITAMIN C [Concomitant]
  31. PROBIOTIC                          /06395501/ [Concomitant]
     Active Substance: BIFIDOBACTERIUM ANIMALIS LACTIS
  32. FLOVENT [Concomitant]
     Active Substance: FLUTICASONE PROPIONATE
  33. ASPIRIN. [Concomitant]
     Active Substance: ASPIRIN
  34. TAMIFLU [Concomitant]
     Active Substance: OSELTAMIVIR PHOSPHATE
  35. NITROGLYCERINE [Concomitant]
     Active Substance: NITROGLYCERIN
  36. BENZONATATE. [Concomitant]
     Active Substance: BENZONATATE
  37. POTASSIUM CHLORIDE. [Concomitant]
     Active Substance: POTASSIUM CHLORIDE
  38. IPRATROPIUM BROMIDE AND ALBUTEROL SULFATE [Concomitant]
     Active Substance: ALBUTEROL SULFATE\IPRATROPIUM BROMIDE
  39. ESOMEPRAZOLE. [Concomitant]
     Active Substance: ESOMEPRAZOLE MAGNESIUM
  40. PYRIDOXINE [Concomitant]
     Active Substance: PYRIDOXINE
  41. ANORO ELLIPTA [Concomitant]
     Active Substance: UMECLIDINIUM BROMIDE\VILANTEROL TRIFENATATE

REACTIONS (1)
  - Infusion site pain [Recovered/Resolved]

NARRATIVE: CASE EVENT DATE: 20180824
